FAERS Safety Report 19515576 (Version 3)
Quarter: 2021Q3

REPORT INFORMATION
  Report Type: Report from Study
  Country: US (occurrence: US)
  Receive Date: 20210710
  Receipt Date: 20210925
  Transmission Date: 20211014
  Serious: No
  Sender: FDA-Public Use
  Company Number: NVSC2021US151014

PATIENT
  Age: 61 Year
  Sex: Male

DRUGS (2)
  1. LOSARTAN. [Suspect]
     Active Substance: LOSARTAN
     Indication: PRODUCT USED FOR UNKNOWN INDICATION
     Dosage: UNK
     Route: 065
     Dates: start: 20210615
  2. ENTRESTO [Suspect]
     Active Substance: SACUBITRIL\VALSARTAN
     Indication: PRODUCT USED FOR UNKNOWN INDICATION
     Dosage: 1 DF, BID (97/103 MG)
     Route: 048
     Dates: start: 20210615

REACTIONS (14)
  - Feeling abnormal [Unknown]
  - Weight decreased [Unknown]
  - Chest discomfort [Recovering/Resolving]
  - Blood calcium increased [Recovering/Resolving]
  - Depression [Not Recovered/Not Resolved]
  - Liver disorder [Recovering/Resolving]
  - Anger [Not Recovered/Not Resolved]
  - Anxiety [Unknown]
  - Blood pressure increased [Not Recovered/Not Resolved]
  - Stress [Unknown]
  - Fatigue [Not Recovered/Not Resolved]
  - Dyspnoea [Recovering/Resolving]
  - Somnolence [Recovering/Resolving]
  - Chest discomfort [Not Recovered/Not Resolved]

NARRATIVE: CASE EVENT DATE: 201908
